FAERS Safety Report 7811362-7 (Version None)
Quarter: 2011Q4

REPORT INFORMATION
  Report Type: 
  Country: None (occurrence: None)
  Receive Date: 20111013
  Receipt Date: 20111004
  Transmission Date: 20120403
  Serious: Yes (Hospitalization)
  Sender: FDA-Public Use
  Company Number: FR-PFIZER INC-2011237037

PATIENT
  Age: 49 Year
  Sex: Male

DRUGS (3)
  1. CYTARABINE [Suspect]
     Dosage: 1800 MG, 2X/DAY
     Route: 042
     Dates: start: 20080521, end: 20080525
  2. GEMTUZUMAB OZOGAMICIN [Suspect]
     Indication: ACUTE LEUKAEMIA
     Dosage: 10.8 MG, 1X/DAY
     Route: 042
     Dates: start: 20080524, end: 20080524
  3. MITOXANTRONE [Suspect]
     Dosage: 21.6 MG, 1X/DAY
     Route: 042
     Dates: start: 20080521, end: 20080522

REACTIONS (2)
  - BRONCHOPULMONARY ASPERGILLOSIS [None]
  - FEBRILE BONE MARROW APLASIA [None]
